FAERS Safety Report 10405162 (Version 3)
Quarter: 2014Q3

REPORT INFORMATION
  Report Type: Spontaneous
  Country: US (occurrence: None)
  Receive Date: 20140820
  Receipt Date: 20140911
  Transmission Date: 20150326
  Serious: Yes (Hospitalization)
  Sender: FDA-Public Use
  Company Number: QSC-2014-0532

PATIENT
  Age: 36 Year
  Sex: Male

DRUGS (24)
  1. NOVOLOG [Concomitant]
     Active Substance: INSULIN ASPART
  2. MULTIVITAMIN (VITAMINS NOS) [Concomitant]
     Active Substance: VITAMINS
  3. PHENERGAN [Concomitant]
     Active Substance: PROMETHAZINE HYDROCHLORIDE
  4. BACLOFEN (BACLOFEN) [Concomitant]
     Active Substance: BACLOFEN
  5. LISINOPRIL (LISINOPRIL) [Concomitant]
     Active Substance: LISINOPRIL
  6. TUMS ULTRA (CALCIUM CARBONATE) [Concomitant]
  7. METHADONE [Concomitant]
     Active Substance: METHADONE HYDROCHLORIDE
  8. MAG OXIDE (MAGNESIUM OXIDE) [Concomitant]
  9. KLONOPIN [Concomitant]
     Active Substance: CLONAZEPAM
  10. LIPITOR [Concomitant]
     Active Substance: ATORVASTATIN CALCIUM
  11. FLAXSEED OIL (LINUM USITATISSIMUM SEED OIL) [Concomitant]
  12. LOVENOX [Concomitant]
     Active Substance: ENOXAPARIN SODIUM
  13. H.P. ACTHAR [Suspect]
     Active Substance: CORTICOTROPIN
     Indication: NEPHROTIC SYNDROME
     Route: 058
     Dates: start: 20131116
  14. ZANTAC [Concomitant]
     Active Substance: RANITIDINE HYDROCHLORIDE
  15. HYDROCODONE BITARTRATE AND ACETAMINOPHEN (HYDROCODONE BITARTRATE, PARACETAMOL) [Concomitant]
  16. RELISTOR [Concomitant]
     Active Substance: METHYLNALTREXONE BROMIDE
  17. VITAMIN C [Concomitant]
     Active Substance: ASCORBIC ACID
  18. FOLIC CID (FOLIC ACID) [Concomitant]
  19. FUROSEMIDE (FUROSEMIDE) [Concomitant]
     Active Substance: FUROSEMIDE
  20. VITAMIN D3 [Concomitant]
     Active Substance: CHOLECALCIFEROL
  21. STOOL SOFTENER (DOCUSATE SODIUM) [Concomitant]
     Active Substance: DOCUSATE SODIUM
  22. ADVAIR (FLUTICASONE PROPIONATE, SALEMTEROL XINAFOATE) [Concomitant]
  23. HYDROCHLOROTHIAZIDE (HYDROCHLOROTHIAZIDE) [Concomitant]
     Active Substance: HYDROCHLOROTHIAZIDE
  24. FLEXERIL [Concomitant]
     Active Substance: CYCLOBENZAPRINE HYDROCHLORIDE

REACTIONS (8)
  - Pharyngitis [None]
  - Nephrotic syndrome [None]
  - Goitre [None]
  - Pneumonia [None]
  - Anaemia [None]
  - Pharyngeal oedema [None]
  - Infection [None]
  - Tachycardia [None]

NARRATIVE: CASE EVENT DATE: 20140327
